FAERS Safety Report 14826895 (Version 1)
Quarter: 2018Q2

REPORT INFORMATION
  Report Type: Spontaneous
  Country: RU (occurrence: RU)
  Receive Date: 20180430
  Receipt Date: 20180430
  Transmission Date: 20180711
  Serious: Yes (Other)
  Sender: FDA-Public Use
  Company Number: RU-BAYER-2018-080592

PATIENT
  Sex: Male

DRUGS (2)
  1. NEXAVAR [Suspect]
     Active Substance: SORAFENIB
     Dosage: 800 MG, QD
     Dates: start: 201109
  2. ZOLEDRONIC ACID [Suspect]
     Active Substance: ZOLEDRONIC ACID
     Dosage: UNK
     Dates: start: 201112

REACTIONS (11)
  - Metastases to bone [None]
  - Hypertension [None]
  - Osteonecrosis of jaw [None]
  - Haematuria [None]
  - Skin fissures [None]
  - Diarrhoea [None]
  - Renal neoplasm [None]
  - Dry skin [None]
  - Tinnitus [None]
  - Pulmonary mass [None]
  - Central nervous system lesion [None]

NARRATIVE: CASE EVENT DATE: 201502
